FAERS Safety Report 8495627-4 (Version None)
Quarter: 2012Q3

REPORT INFORMATION
  Report Type: 
  Country: None (occurrence: None)
  Receive Date: 20120709
  Receipt Date: 20120628
  Transmission Date: 20120928
  Serious: Yes (Death)
  Sender: FDA-Public Use
  Company Number: GB-ROCHE-1082988

PATIENT
  Sex: Female
  Weight: 90 kg

DRUGS (2)
  1. METHOTREXATE [Concomitant]
  2. MABTHERA [Suspect]
     Indication: PRODUCT USED FOR UNKNOWN INDICATION

REACTIONS (6)
  - AMYLOIDOSIS [None]
  - INCISIONAL HERNIA [None]
  - ABSCESS [None]
  - SEPSIS [None]
  - RENAL FAILURE [None]
  - DEATH [None]
